FAERS Safety Report 14516260 (Version 1)
Quarter: 2018Q1

REPORT INFORMATION
  Report Type: Spontaneous
  Country: ES (occurrence: ES)
  Receive Date: 20180211
  Receipt Date: 20180211
  Transmission Date: 20180509
  Serious: Yes (Other)
  Sender: FDA-Public Use
  Company Number: PHHY2018ES019482

PATIENT
  Age: 71 Year
  Sex: Male

DRUGS (2)
  1. LCZ696 [Suspect]
     Active Substance: SACUBITRIL\VALSARTAN
     Indication: LEFT VENTRICULAR FAILURE
  2. LCZ696 [Suspect]
     Active Substance: SACUBITRIL\VALSARTAN
     Indication: MYOCARDIAL ISCHAEMIA
     Dosage: 100 MG, BID
     Route: 065

REACTIONS (2)
  - Ventricular tachycardia [Recovered/Resolved]
  - Product use in unapproved indication [Unknown]
